FAERS Safety Report 17059039 (Version 1)
Quarter: 2019Q4

REPORT INFORMATION
  Report Type: Spontaneous
  Country: SI (occurrence: SI)
  Receive Date: 20191121
  Receipt Date: 20191121
  Transmission Date: 20200122
  Serious: Yes (Disabling, Other)
  Sender: FDA-Public Use
  Company Number: SI-JNJFOC-20191106037

PATIENT
  Sex: Female

DRUGS (1)
  1. DUROGESIC [Suspect]
     Active Substance: FENTANYL
     Indication: PAIN
     Route: 062

REACTIONS (11)
  - Hallucination [Unknown]
  - Chills [Unknown]
  - Constipation [Unknown]
  - Feeding disorder [Unknown]
  - Breast discharge [Unknown]
  - Pain [Unknown]
  - Pyrexia [Unknown]
  - Hyperhidrosis [Unknown]
  - Weight decreased [Unknown]
  - Immobile [Unknown]
  - Lymphadenopathy [Unknown]
